FAERS Safety Report 4835517-9 (Version None)
Quarter: 2005Q4

REPORT INFORMATION
  Report Type: 
  Country: None (occurrence: None)
  Receive Date: 20051121
  Receipt Date: 20051116
  Transmission Date: 20060501
  Serious: Yes (Other)
  Sender: FDA-Public Use
  Company Number: 006082

PATIENT
  Age: 49 Year
  Sex: Female

DRUGS (6)
  1. MEDROXYPROGESTERONE ACETATE [Suspect]
     Dosage: ORAL
     Route: 048
     Dates: start: 19990101, end: 20011001
  2. PREMARIN [Suspect]
     Dosage: ORAL
     Route: 048
     Dates: start: 19990101, end: 20011001
  3. PROVERA [Suspect]
     Dosage: ORAL
     Route: 048
     Dates: start: 19990101, end: 20011001
  4. PREMPRO [Suspect]
     Dosage: ORAL
     Route: 048
     Dates: start: 19990101, end: 20011001
  5. ESTRATAB [Suspect]
     Dosage: ORAL
     Route: 048
     Dates: start: 19990101, end: 20011001
  6. PROMETRIUM [Suspect]
     Dosage: ORAL
     Route: 048
     Dates: start: 19990101, end: 20011001

REACTIONS (3)
  - BREAST CANCER FEMALE [None]
  - OESTROGEN RECEPTOR ASSAY POSITIVE [None]
  - PROGESTERONE RECEPTOR ASSAY POSITIVE [None]
